FAERS Safety Report 22623574 (Version 1)
Quarter: 2023Q2

REPORT INFORMATION
  Report Type: Spontaneous
  Country: FR (occurrence: FR)
  Receive Date: 20230621
  Receipt Date: 20230621
  Transmission Date: 20230722
  Serious: Yes (Life-Threatening, Other)
  Sender: FDA-Public Use
  Company Number: FR-AFSSAPS-NC2023000654

PATIENT
  Age: 65 Year
  Sex: Male
  Weight: 52 kg

DRUGS (7)
  1. DIAZEPAM [Interacting]
     Active Substance: DIAZEPAM
     Indication: Psychotic disorder
     Dosage: UNK,CF COMMENTAIRE
     Route: 048
     Dates: start: 20230505, end: 20230515
  2. ARIPIPRAZOLE [Interacting]
     Active Substance: ARIPIPRAZOLE
     Indication: Psychotic disorder
     Dosage: 10 MILLIGRAM, ONCE A DAY
     Route: 048
     Dates: start: 20230512, end: 20230517
  3. TROPATEPINE HYDROCHLORIDE [Interacting]
     Active Substance: TROPATEPINE HYDROCHLORIDE
     Indication: Psychotic disorder
     Dosage: 10 MILLIGRAM, ONCE A DAY
     Route: 048
     Dates: start: 20230509, end: 20230517
  4. LOXAPINE [Interacting]
     Active Substance: LOXAPINE
     Indication: Psychotic disorder
     Dosage: UNK, CF COMMENTAIRE
     Route: 048
     Dates: start: 20230505, end: 20230515
  5. ASTEMIZOLE [Interacting]
     Active Substance: ASTEMIZOLE
     Indication: Psychotic disorder
     Dosage: 5 MILLIGRAM, ONCE A DAY
     Route: 048
     Dates: start: 20230515, end: 20230517
  6. HALOPERIDOL [Interacting]
     Active Substance: HALOPERIDOL
     Indication: Psychotic disorder
     Dosage: 20 GTT DROPS, ONCE A DAY
     Route: 048
     Dates: start: 20230505, end: 20230510
  7. HALOPERIDOL [Interacting]
     Active Substance: HALOPERIDOL
     Dosage: 40 GTT DROPS, ONCE A DAY
     Route: 048
     Dates: start: 20230511, end: 20230512

REACTIONS (2)
  - Coma [Recovered/Resolved]
  - Urinary retention [Recovered/Resolved]

NARRATIVE: CASE EVENT DATE: 20230517
